FAERS Safety Report 25278587 (Version 1)
Quarter: 2025Q2

REPORT INFORMATION
  Report Type: Spontaneous
  Country: CN (occurrence: CN)
  Receive Date: 20250507
  Receipt Date: 20250507
  Transmission Date: 20250716
  Serious: Yes (Life-Threatening, Other)
  Sender: PFIZER
  Company Number: CN-PFIZER INC-PV202500052830

PATIENT
  Age: 59 Year
  Sex: Female
  Weight: 54 kg

DRUGS (2)
  1. CYTARABINE [Suspect]
     Active Substance: CYTARABINE
     Indication: Acute myeloid leukaemia
     Dosage: 200 MG (ALSO REPORTED AS 150MG), 1X/DAY
     Route: 041
     Dates: start: 20250409, end: 20250415
  2. DAUNORUBICIN HYDROCHLORIDE [Suspect]
     Active Substance: DAUNORUBICIN HYDROCHLORIDE
     Indication: Acute myeloid leukaemia
     Dosage: 70 MG, 1X/DAY
     Route: 041
     Dates: start: 20250409, end: 20250411

REACTIONS (2)
  - Myelosuppression [Recovering/Resolving]
  - Contusion [Recovering/Resolving]

NARRATIVE: CASE EVENT DATE: 20250420
